FAERS Safety Report 13774705 (Version 2)
Quarter: 2017Q3

REPORT INFORMATION
  Report Type: Spontaneous
  Country: US (occurrence: US)
  Receive Date: 20170721
  Receipt Date: 20170829
  Transmission Date: 20171127
  Serious: Yes (Other)
  Sender: FDA-Public Use
  Company Number: US-LUPIN (EUROPE) LIMITED-2017-03882

PATIENT
  Age: 69 Year
  Sex: Female
  Weight: 63.39 kg

DRUGS (2)
  1. LISINOPRIL TABLETS USP, 10MG [Suspect]
     Active Substance: LISINOPRIL
     Dosage: 10 MG, QD
     Route: 048
     Dates: start: 20170515, end: 20170712
  2. LISINOPRIL TABLETS USP, 10MG [Suspect]
     Active Substance: LISINOPRIL
     Indication: HYPERTENSION
     Dosage: UNK
     Route: 048

REACTIONS (3)
  - Peripheral swelling [Recovered/Resolved]
  - Hypertension [Recovered/Resolved]
  - Drug ineffective [Unknown]

NARRATIVE: CASE EVENT DATE: 20170601
